FAERS Safety Report 24256515 (Version 2)
Quarter: 2024Q3

REPORT INFORMATION
  Report Type: Spontaneous
  Country: ZA (occurrence: ZA)
  Receive Date: 20240828
  Receipt Date: 20240905
  Transmission Date: 20241017
  Serious: Yes (Other)
  Sender: Haleon PLC
  Company Number: ZA-HALEON-2193389

PATIENT

DRUGS (1)
  1. ACETAMINOPHEN\ASPIRIN\CAFFEINE [Suspect]
     Active Substance: ACETAMINOPHEN\ASPIRIN\CAFFEINE
     Indication: Headache

REACTIONS (5)
  - Drug dependence [Unknown]
  - Suspected counterfeit product [Unknown]
  - Nausea [Unknown]
  - Product complaint [Unknown]
  - Drug ineffective [Unknown]
